FAERS Safety Report 4531411-1 (Version None)
Quarter: 2004Q4

REPORT INFORMATION
  Report Type: 
  Country: None (occurrence: None)
  Receive Date: 20041216
  Receipt Date: 20041130
  Transmission Date: 20050328
  Serious: Yes (Hospitalization, Other)
  Sender: FDA-Public Use
  Company Number: 204544

PATIENT
  Sex: Female
  Weight: 71.6683 kg

DRUGS (11)
  1. AVONEX [Suspect]
     Indication: MULTIPLE SCLEROSIS
     Dosage: SEE IMAGE
     Route: 030
     Dates: start: 19990801, end: 19990901
  2. AVONEX [Suspect]
     Indication: MULTIPLE SCLEROSIS
     Dosage: SEE IMAGE
     Route: 030
     Dates: start: 19990901, end: 19990901
  3. AVONEX [Suspect]
     Indication: MULTIPLE SCLEROSIS
     Dosage: SEE IMAGE
     Route: 030
     Dates: start: 19991001, end: 19991001
  4. AVONEX [Suspect]
     Indication: MULTIPLE SCLEROSIS
     Dosage: SEE IMAGE
     Route: 030
     Dates: start: 19991101, end: 20010401
  5. AVONEX [Suspect]
     Indication: MULTIPLE SCLEROSIS
     Dosage: SEE IMAGE
     Route: 030
     Dates: start: 20011101, end: 20020301
  6. AVONEX [Suspect]
     Indication: MULTIPLE SCLEROSIS
     Dosage: SEE IMAGE
     Route: 030
     Dates: start: 20020801, end: 20021201
  7. AVONEX [Suspect]
     Indication: MULTIPLE SCLEROSIS
     Dosage: SEE IMAGE
     Route: 030
     Dates: start: 20030101, end: 20030201
  8. AVONEX [Suspect]
     Indication: MULTIPLE SCLEROSIS
     Dosage: SEE IMAGE
     Route: 030
     Dates: start: 20030801
  9. EFFEXOR XR [Concomitant]
  10. MAXALT [Concomitant]
  11. SOMA [Concomitant]

REACTIONS (8)
  - ABORTION SPONTANEOUS [None]
  - CONDITION AGGRAVATED [None]
  - DRUG EXPOSURE DURING PREGNANCY [None]
  - FIBROMYALGIA [None]
  - INFLUENZA LIKE ILLNESS [None]
  - MULTIPLE SCLEROSIS [None]
  - OSTEOARTHRITIS [None]
  - PREGNANCY [None]
